FAERS Safety Report 14869987 (Version 1)
Quarter: 2018Q2

REPORT INFORMATION
  Report Type: Spontaneous
  Country: JP (occurrence: JP)
  Receive Date: 20180509
  Receipt Date: 20180509
  Transmission Date: 20180711
  Serious: Yes (Hospitalization)
  Sender: FDA-Public Use
  Company Number: JP-TEVA-2018-JP-889838

PATIENT
  Age: 65 Year
  Sex: Male

DRUGS (5)
  1. PHENYTOIN. [Concomitant]
     Active Substance: PHENYTOIN
     Indication: PROPHYLAXIS
     Route: 065
  2. FASUDIL HYDROCHLORIDE HYDRATE [Suspect]
     Active Substance: FASUDIL HYDROCHLORIDE HYDRATE
     Indication: PROPHYLAXIS
     Route: 065
  3. EDARAVONE [Concomitant]
     Active Substance: EDARAVONE
     Dosage: UNTIL POD 3
     Route: 065
  4. OZAGREL HYDROCHLORIDE HYDRATE [Concomitant]
     Indication: PROPHYLAXIS
     Route: 065
  5. CILOSTAZOL. [Suspect]
     Active Substance: CILOSTAZOL
     Indication: PROPHYLAXIS
     Route: 065

REACTIONS (2)
  - Vasogenic cerebral oedema [Recovering/Resolving]
  - Cerebral hyperperfusion syndrome [Recovering/Resolving]
